FAERS Safety Report 25500842 (Version 1)
Quarter: 2025Q3

REPORT INFORMATION
  Report Type: Spontaneous
  Country: EU (occurrence: EU)
  Receive Date: 20250701
  Receipt Date: 20250701
  Transmission Date: 20251020
  Serious: Yes (Life-Threatening, Hospitalization, Other)
  Sender: BOEHRINGER INGELHEIM
  Company Number: EU-Komodo Health-a23aa000008Z1Y1AAK

PATIENT
  Age: 86 Year
  Sex: Male

DRUGS (1)
  1. JARDIANCE [Suspect]
     Active Substance: EMPAGLIFLOZIN
     Indication: Type 2 diabetes mellitus
     Dates: start: 202409

REACTIONS (3)
  - Endotracheal intubation [Unknown]
  - Myocardial infarction [Unknown]
  - Ketonuria [Recovering/Resolving]

NARRATIVE: CASE EVENT DATE: 20250627
